FAERS Safety Report 21515252 (Version 1)
Quarter: 2022Q4

REPORT INFORMATION
  Report Type: Report from Study
  Country: IT (occurrence: IT)
  Receive Date: 20221027
  Receipt Date: 20221027
  Transmission Date: 20230113
  Serious: Yes (Other)
  Sender: FDA-Public Use
  Company Number: None

PATIENT
  Age: 57 Year
  Sex: Female

DRUGS (2)
  1. OXALIPLATIN [Suspect]
     Active Substance: OXALIPLATIN
     Indication: Colon neoplasm
     Dosage: 130 MG / M2 EVERY 21 DAYS, UNIT DOSE: 214 MG , FREQUENCY TIME : 1 CYCLICAL, DURATION : 126 DAYS
     Dates: start: 20220429, end: 20220902
  2. CAPECITABINE [Suspect]
     Active Substance: CAPECITABINE
     Indication: Colon neoplasm
     Dosage: 500MG: 3 TABLETS AFTER BREAKFAST AND 3 TABLETS AFTER DINNER, EVERY DAY, STARTING FROM THE DAY AFTER
     Dates: start: 20220430, end: 20220902

REACTIONS (3)
  - Gastric ulcer [Recovering/Resolving]
  - Asthenia [Recovering/Resolving]
  - Diarrhoea [Recovering/Resolving]

NARRATIVE: CASE EVENT DATE: 20220801
